FAERS Safety Report 18432180 (Version 1)
Quarter: 2020Q4

REPORT INFORMATION
  Report Type: Spontaneous
  Country: ZA (occurrence: ZA)
  Receive Date: 20201027
  Receipt Date: 20201027
  Transmission Date: 20210114
  Serious: No
  Sender: FDA-Public Use
  Company Number: None

PATIENT
  Age: 31 Year
  Sex: Male
  Weight: 78 kg

DRUGS (1)
  1. ANUSOL NOS [Suspect]
     Active Substance: BALSAM PERU\BENZYL BENZOATE\BISMUTH HYDROXIDE\BISMUTH SUBGALLATE\HYDROCORTISONE ACETATE\ZINC OXIDE
     Indication: HAEMORRHOIDS
     Route: 061
     Dates: start: 20200412, end: 20200715

REACTIONS (8)
  - Stress [None]
  - Fatigue [None]
  - Feeling hot [None]
  - Neck pain [None]
  - Dizziness [None]
  - Chest pain [None]
  - Asthenia [None]
  - Pain in extremity [None]

NARRATIVE: CASE EVENT DATE: 20201027
